FAERS Safety Report 12519563 (Version 4)
Quarter: 2017Q3

REPORT INFORMATION
  Report Type: Spontaneous
  Country: DE (occurrence: DE)
  Receive Date: 20160701
  Receipt Date: 20170927
  Transmission Date: 20171127
  Serious: Yes (Hospitalization, Disabling, Other)
  Sender: FDA-Public Use
  Company Number: DE-ABBVIE-16K-062-1662398-00

PATIENT
  Age: 26 Year
  Sex: Male
  Weight: 65 kg

DRUGS (9)
  1. HUMIRA [Suspect]
     Active Substance: ADALIMUMAB
     Indication: CROHN^S DISEASE
     Route: 058
     Dates: start: 20140728, end: 2014
  2. PREDNISOLON [Concomitant]
     Active Substance: PREDNISOLONE
     Indication: PSORIASIS
     Dosage: 50 MG, THEN REDUCED
     Route: 048
     Dates: start: 201511, end: 201603
  3. ENTYVIO [Suspect]
     Active Substance: VEDOLIZUMAB
     Route: 042
     Dates: start: 201512, end: 20160415
  4. PANTOPRAZOLE [Concomitant]
     Active Substance: PANTOPRAZOLE
     Indication: GASTROOESOPHAGEAL REFLUX DISEASE
     Route: 048
     Dates: start: 2014
  5. ENTYVIO [Suspect]
     Active Substance: VEDOLIZUMAB
     Dosage: WEEK SIX
     Route: 042
     Dates: start: 201512, end: 201512
  6. DEKRISTOL [Concomitant]
     Active Substance: CHOLECALCIFEROL
     Indication: VITAMIN D DEFICIENCY
     Route: 048
     Dates: start: 2014
  7. ENTYVIO [Suspect]
     Active Substance: VEDOLIZUMAB
     Indication: PSORIATIC ARTHROPATHY
     Dosage: WEEK 0
     Route: 042
     Dates: start: 20151112, end: 20151112
  8. ENTYVIO [Suspect]
     Active Substance: VEDOLIZUMAB
     Dosage: WEEK TWO
     Route: 042
     Dates: start: 201511, end: 201511
  9. HUMIRA [Suspect]
     Active Substance: ADALIMUMAB
     Route: 058
     Dates: start: 201411, end: 201512

REACTIONS (24)
  - SAPHO syndrome [Not Recovered/Not Resolved]
  - Spondylitis [Not Recovered/Not Resolved]
  - Osteolysis [Not Recovered/Not Resolved]
  - Aspartate aminotransferase increased [Unknown]
  - Osteitis [Unknown]
  - Bone pain [Recovering/Resolving]
  - Intervertebral discitis [Unknown]
  - Inflammatory marker increased [Recovering/Resolving]
  - Spondylitis [Unknown]
  - Spinal pain [Unknown]
  - Alanine aminotransferase increased [Unknown]
  - Thrombophlebitis [Unknown]
  - Cervical vertebral fracture [Unknown]
  - Bone pain [Unknown]
  - Osteomyelitis [Recovering/Resolving]
  - Psoriatic arthropathy [Unknown]
  - Osteoporosis [Not Recovered/Not Resolved]
  - Drug ineffective [Unknown]
  - Musculoskeletal pain [Unknown]
  - Myelopathy [Recovering/Resolving]
  - Rash pustular [Not Recovered/Not Resolved]
  - Pustular psoriasis [Recovering/Resolving]
  - Spinal deformity [Not Recovered/Not Resolved]
  - Blood iron decreased [Unknown]

NARRATIVE: CASE EVENT DATE: 201510
